FAERS Safety Report 24328621 (Version 1)
Quarter: 2024Q3

REPORT INFORMATION
  Report Type: Spontaneous
  Country: US (occurrence: None)
  Receive Date: 20240917
  Receipt Date: 20240917
  Transmission Date: 20241017
  Serious: Yes (Hospitalization)
  Sender: Public
  Company Number: None

PATIENT
  Sex: Female

DRUGS (1)
  1. FORTEO [Suspect]
     Active Substance: TERIPARATIDE
     Dosage: FREQ: INJECT 20 MCG UNDER THE SKIN ONCE A DAY IN THE ABDOMEN OR THIGH. DISCARD PEN 28 DAYS AFTER INI
     Route: 058
     Dates: start: 20221209

REACTIONS (3)
  - COVID-19 [None]
  - Thrombosis [None]
  - Therapy interrupted [None]
